FAERS Safety Report 17511456 (Version 2)
Quarter: 2020Q1

REPORT INFORMATION
  Report Type: Spontaneous
  Country: CH (occurrence: CH)
  Receive Date: 20200306
  Receipt Date: 20200324
  Transmission Date: 20200409
  Serious: Yes (Hospitalization, Other)
  Sender: FDA-Public Use
  Company Number: CH-PFIZER INC-2020094651

PATIENT
  Age: 57 Year
  Sex: Male

DRUGS (32)
  1. TEMESTA EXPIDET [Suspect]
     Active Substance: LORAZEPAM
     Dosage: 7.5 MG, 1X/DAY
     Route: 048
     Dates: start: 20181122, end: 20190128
  2. TEMESTA EXPIDET [Suspect]
     Active Substance: LORAZEPAM
     Dosage: 4.5 MG, 1X/DAY
     Route: 048
     Dates: start: 20190128, end: 20190205
  3. PRIADEL [Suspect]
     Active Substance: LITHIUM
     Dosage: 16.2 MMOL 1X/DAY (MORNING) + 10.8 MMOL 1X/DAY (EVENING)
     Route: 048
  4. ENTUMINE [Concomitant]
     Active Substance: CLOTHIAPINE
     Dosage: UNK
     Dates: start: 20181123
  5. MOVICOL [Concomitant]
     Active Substance: POLYETHYLENE GLYCOL 3350\POTASSIUM CHLORIDE\SODIUM BICARBONATE\SODIUM CHLORIDE
     Dosage: UNK
  6. AKINETON [Concomitant]
     Active Substance: BIPERIDEN HYDROCHLORIDE
     Dosage: UNK
     Dates: start: 20190122, end: 20190220
  7. RIOPAN [Concomitant]
     Dosage: UNK UNK, AS NEEDED
  8. TEMESTA EXPIDET [Suspect]
     Active Substance: LORAZEPAM
     Dosage: UNK
     Route: 048
     Dates: start: 20190219, end: 201904
  9. DALMADORM [Concomitant]
     Active Substance: FLURAZEPAM HYDROCHLORIDE
     Dosage: UNK
  10. ULTIBRO BREEZHALER [Concomitant]
     Active Substance: GLYCOPYRRONIUM\INDACATEROL
     Dosage: UNK
  11. PRIADEL [Suspect]
     Active Substance: LITHIUM
     Dosage: UNK, (STOP 2 DAYS)
     Route: 048
     Dates: start: 20190122, end: 20190209
  12. NEXIUM 1-2-3 [Concomitant]
     Active Substance: AMOXICILLIN\CLARITHROMYCIN\ESOMEPRAZOLE
     Dosage: UNK
  13. NICORETTE INALADOR [Concomitant]
     Dosage: UNK UNK, AS NEEDED
  14. PRIADEL [Suspect]
     Active Substance: LITHIUM
     Dosage: 5.4 MMOL, 1X/DAY
     Route: 048
     Dates: start: 20190226
  15. ZYPREXA [Suspect]
     Active Substance: OLANZAPINE
     Dosage: UNK
     Dates: end: 20181123
  16. CO-DAFALGAN [Concomitant]
     Active Substance: ACETAMINOPHEN\CODEINE PHOSPHATE
     Dosage: UNK
  17. EUTHYROX [Concomitant]
     Active Substance: LEVOTHYROXINE SODIUM
     Dosage: UNK
  18. EXCIPIAL U [Concomitant]
     Active Substance: UREA
     Dosage: UNK
  19. VENTOLIN [Concomitant]
     Active Substance: ALBUTEROL SULFATE
     Dosage: UNK UNK, AS NEEDED
  20. TEMESTA EXPIDET [Suspect]
     Active Substance: LORAZEPAM
     Dosage: 2 MG, 1X/DAY
     Route: 048
     Dates: start: 201904
  21. PURSANA [Concomitant]
     Active Substance: FIG FRUIT OIL\SORBITOL
     Dosage: 30 ML, 1X/DAY
  22. ANGINA MCC [Concomitant]
     Active Substance: CETYLPYRIDINIUM CHLORIDE\LEVOMENTHOL\LIDOCAINE HYDROCHLORIDE
     Dosage: UNK UNK, AS NEEDED
  23. URISPAS [Concomitant]
     Active Substance: FLAVOXATE HYDROCHLORIDE
     Dosage: UNK UNK, AS NEEDED
  24. TEMESTA EXPIDET [Suspect]
     Active Substance: LORAZEPAM
     Dosage: 10 MG, 1X/DAY
     Route: 048
     Dates: start: 20190205, end: 20190219
  25. PRIADEL [Suspect]
     Active Substance: LITHIUM
     Dosage: 27 MMOL, 1X/DAY
     Route: 048
     Dates: start: 2006, end: 20190122
  26. ZYPREXA [Suspect]
     Active Substance: OLANZAPINE
     Dosage: 10 MG, 1X/DAY
     Route: 048
     Dates: start: 20190104, end: 20190109
  27. ENTUMINE [Concomitant]
     Active Substance: CLOTHIAPINE
     Dosage: 40 MG, 1X/DAY
     Route: 048
     Dates: start: 20181226, end: 20190104
  28. LAXOBERON [Concomitant]
     Active Substance: SODIUM PICOSULFATE
     Dosage: UNK
  29. AKINETON [Concomitant]
     Active Substance: BIPERIDEN HYDROCHLORIDE
     Dosage: UNK UNK, AS NEEDED
  30. TORA-DOL [Concomitant]
     Active Substance: KETOROLAC TROMETHAMINE
     Dosage: UNK UNK, AS NEEDED
  31. PRIADEL [Suspect]
     Active Substance: LITHIUM
     Dosage: 5.4 MMOL, 2X/DAY
     Route: 048
     Dates: start: 20190211, end: 20190225
  32. ZYPREXA [Suspect]
     Active Substance: OLANZAPINE
     Dosage: 15 MG, 1X/DAY
     Route: 048
     Dates: start: 20190109

REACTIONS (8)
  - Cognitive disorder [Recovering/Resolving]
  - Parkinsonism [Recovering/Resolving]
  - Weight decreased [Unknown]
  - Decreased appetite [Unknown]
  - Asthenia [Unknown]
  - Somnolence [Recovering/Resolving]
  - Salivary hypersecretion [Not Recovered/Not Resolved]
  - Anterograde amnesia [Recovering/Resolving]

NARRATIVE: CASE EVENT DATE: 2018
